FAERS Safety Report 7569358-9 (Version None)
Quarter: 2011Q2

REPORT INFORMATION
  Report Type: 
  Country: None (occurrence: None)
  Receive Date: 20110623
  Receipt Date: 20110617
  Transmission Date: 20111010
  Serious: Yes (Death, Hospitalization)
  Sender: FDA-Public Use
  Company Number: FR-PFIZER INC-2007093109

PATIENT
  Age: 71 Year
  Sex: Female
  Weight: 61 kg

DRUGS (13)
  1. POTASSIUM CHLORIDE [Concomitant]
     Route: 048
     Dates: start: 20050226, end: 20071029
  2. NEXIUM [Concomitant]
     Route: 048
     Dates: start: 20070314, end: 20071029
  3. METFORMIN HCL [Concomitant]
     Route: 048
     Dates: start: 20050226, end: 20071029
  4. DIAMICRON [Concomitant]
     Route: 048
     Dates: start: 20050226, end: 20071029
  5. PERINDOPRIL ERBUMINE [Concomitant]
     Route: 048
     Dates: start: 20060526, end: 20071029
  6. CORDARONE [Concomitant]
     Route: 048
     Dates: start: 20060518, end: 20071029
  7. IMOVANE [Concomitant]
     Route: 048
     Dates: start: 20070314, end: 20071029
  8. LASIX [Concomitant]
     Route: 048
     Dates: start: 20050131
  9. ALLOPURINOL [Concomitant]
     Route: 048
     Dates: start: 20070314, end: 20071029
  10. LORAZEPAM [Concomitant]
     Route: 048
     Dates: start: 20070314, end: 20071029
  11. CLARITIN [Concomitant]
     Route: 048
     Dates: start: 20070801, end: 20071029
  12. EPLERENONE [Suspect]
     Indication: CARDIAC FAILURE
     Dosage: 25 MG DAILY
     Route: 048
     Dates: start: 20071024, end: 20071029
  13. PREVISCAN [Concomitant]
     Route: 048
     Dates: start: 20050131, end: 20071029

REACTIONS (4)
  - CONDITION AGGRAVATED [None]
  - HYPERKALAEMIA [None]
  - CARDIAC FAILURE [None]
  - RENAL FAILURE [None]
